FAERS Safety Report 9030757 (Version 3)
Quarter: 2013Q3

REPORT INFORMATION
  Report Type: Report from Study
  Country: DE (occurrence: DE)
  Receive Date: 20130123
  Receipt Date: 20130805
  Transmission Date: 20140515
  Serious: Yes (Death, Hospitalization)
  Sender: FDA-Public Use
  Company Number: DE-ACTELION-A-US2013-78258

PATIENT
  Age: 24 Year
  Sex: Female

DRUGS (4)
  1. VENTAVIS [Suspect]
     Indication: PULMONARY ARTERIAL HYPERTENSION
     Dosage: 5 MCG, Q4HRS
     Route: 055
     Dates: start: 20121214, end: 20121224
  2. SILDENAFIL [Concomitant]
  3. METOPROLOL [Concomitant]
  4. MARCUMAR [Concomitant]

REACTIONS (14)
  - Pericarditis [Fatal]
  - Pericardial effusion [Fatal]
  - Pulmonary hypertension [Fatal]
  - Cardiac failure congestive [Fatal]
  - Cor pulmonale chronic [Fatal]
  - Cough [Fatal]
  - Chest pain [Fatal]
  - Dyspnoea [Fatal]
  - Vasculitis cerebral [Unknown]
  - Bronchopneumonia [Unknown]
  - Cardiovascular disorder [Not Recovered/Not Resolved]
  - Pallor [Not Recovered/Not Resolved]
  - Blood pressure decreased [Not Recovered/Not Resolved]
  - Dizziness [Not Recovered/Not Resolved]
